FAERS Safety Report 13215919 (Version 3)
Quarter: 2017Q2

REPORT INFORMATION
  Report Type: Report from Study
  Country: BR (occurrence: BR)
  Receive Date: 20170209
  Receipt Date: 20170418
  Transmission Date: 20170830
  Serious: Yes (Disabling, Other)
  Sender: FDA-Public Use
  Company Number: BR-ALEXION PHARMACEUTICALS INC.-A201701118

PATIENT
  Age: 20 Year
  Sex: Male

DRUGS (2)
  1. SOLIRIS [Suspect]
     Active Substance: ECULIZUMAB
     Dosage: 900 MG, Q2W
     Route: 042
     Dates: start: 20150415
  2. SOLIRIS [Suspect]
     Active Substance: ECULIZUMAB
     Indication: PAROXYSMAL NOCTURNAL HAEMOGLOBINURIA
     Dosage: 600 MG, QW
     Route: 042
     Dates: start: 20150318, end: 20150408

REACTIONS (8)
  - Retinal haemorrhage [Recovering/Resolving]
  - Confusional state [Not Recovered/Not Resolved]
  - Malaise [Unknown]
  - Amnesia [Not Recovered/Not Resolved]
  - Platelet count decreased [Not Recovered/Not Resolved]
  - Haemoglobin decreased [Not Recovered/Not Resolved]
  - Blindness [Unknown]
  - Mobility decreased [Unknown]

NARRATIVE: CASE EVENT DATE: 20161230
